FAERS Safety Report 9559509 (Version 1)
Quarter: 2013Q3

REPORT INFORMATION
  Report Type: Spontaneous
  Country: US (occurrence: None)
  Receive Date: 20130909
  Receipt Date: 20130909
  Transmission Date: 20140515
  Serious: Yes (Other)
  Sender: FDA-Public Use
  Company Number: 371013

PATIENT
  Age: 58 Year
  Sex: Female
  Weight: 101.1 kg

DRUGS (6)
  1. VICTOZA (LIRAGLUTIDE)SOLUTION FOR INJECTION, 6MG/ML [Suspect]
     Indication: TYPE 2 DIABETES MELLITUS
     Route: 058
     Dates: start: 20130124, end: 20130625
  2. JANUMET /06535301/(METFORMIN HYDROCHLORIDE, SITAGLIPTIN, PHOSPHATE MONOHYDRATE) [Concomitant]
  3. ENLAPRIL (ENLAPRIL) [Concomitant]
  4. KRILL OMEGA RED OIL (OMEGA-3 FATTY ACIDS) [Concomitant]
  5. HYPERNICUM PERFORATUM (HYPERICUM PERFORATUM) [Concomitant]
  6. KRILL OMEGA RED OIL (OMEGA-3 FATTY ACIDS) [Concomitant]

REACTIONS (7)
  - Diabetes mellitus inadequate control [None]
  - Nausea [None]
  - Dyspepsia [None]
  - Vomiting [None]
  - Dizziness [None]
  - Urinary tract infection [None]
  - Glycosylated haemoglobin increased [None]
